FAERS Safety Report 6150173-8 (Version None)
Quarter: 2009Q2

REPORT INFORMATION
  Report Type: 
  Country: None (occurrence: None)
  Receive Date: 20090409
  Receipt Date: 20080613
  Transmission Date: 20091009
  Serious: Yes (Hospitalization)
  Sender: FDA-Public Use
  Company Number: JP-PFIZER INC-2008054907

PATIENT

DRUGS (4)
  1. HYDROCORTISONE AND HYDROCORTISONE ACETATE AND HYDROCORTISONE CIPIONATE [Suspect]
     Indication: BLOOD CORTICOTROPHIN DECREASED
     Route: 048
     Dates: start: 20080531, end: 20080613
  2. SULPERAZON [Concomitant]
     Route: 042
     Dates: start: 20080528, end: 20080530
  3. NEOPHAGEN [Concomitant]
     Route: 042
     Dates: start: 20080609, end: 20080613
  4. DECADRON [Concomitant]
     Route: 048
     Dates: start: 20080616

REACTIONS (3)
  - ALANINE AMINOTRANSFERASE INCREASED [None]
  - ASPARTATE AMINOTRANSFERASE INCREASED [None]
  - HEPATIC FUNCTION ABNORMAL [None]
